FAERS Safety Report 5000314-0 (Version None)
Quarter: 2006Q2

REPORT INFORMATION
  Report Type: 
  Country: None (occurrence: None)
  Receive Date: 20060511
  Receipt Date: 20060303
  Transmission Date: 20061013
  Serious: Yes (Hospitalization)
  Sender: FDA-Public Use
  Company Number: US-MERCK-0603USA00848

PATIENT
  Age: 61 Year
  Sex: Male
  Weight: 126 kg

DRUGS (8)
  1. PLAVIX [Concomitant]
     Route: 065
  2. ALLEGRA [Concomitant]
     Route: 065
  3. VIOXX [Suspect]
     Indication: ARTHROPATHY
     Route: 048
     Dates: start: 19990701, end: 20011201
  4. LIPITOR [Concomitant]
     Route: 065
  5. HUMULIN 70/30 [Concomitant]
     Route: 065
  6. PAXIL [Concomitant]
     Route: 065
  7. TRICOR [Concomitant]
     Route: 065
  8. ACTOS [Concomitant]
     Route: 065

REACTIONS (10)
  - ANGINA PECTORIS [None]
  - ANGIOPATHY [None]
  - ARRHYTHMIA [None]
  - CARDIAC DISORDER [None]
  - CARDIOVASCULAR DISORDER [None]
  - CEREBROVASCULAR ACCIDENT [None]
  - MYOCARDIAL INFARCTION [None]
  - ORGAN FAILURE [None]
  - PULMONARY EMBOLISM [None]
  - THROMBOSIS [None]
